FAERS Safety Report 8914940 (Version 1)
Quarter: 2012Q4

REPORT INFORMATION
  Report Type: 
  Country: US (occurrence: US)
  Receive Date: 20121119
  Receipt Date: 20121119
  Transmission Date: 20130627
  Serious: Yes (Disabling)
  Sender: FDA-Public Use
  Company Number: US-TARO-2012P1064691

PATIENT
  Sex: Male

DRUGS (1)
  1. FLUOROURACIL [Suspect]

REACTIONS (3)
  - Dizziness [Unknown]
  - Deafness [Recovering/Resolving]
  - Fatigue [Unknown]
